FAERS Safety Report 25080053 (Version 5)
Quarter: 2025Q3

REPORT INFORMATION
  Report Type: Spontaneous
  Country: US (occurrence: US)
  Receive Date: 20250314
  Receipt Date: 20250801
  Transmission Date: 20251020
  Serious: Yes (Other)
  Sender: CALLIDITAS THERAPEUTICS AB
  Company Number: US-Calliditas-2025CAL00652

PATIENT
  Age: 52 Year
  Sex: Female

DRUGS (25)
  1. TARPEYO [Suspect]
     Active Substance: BUDESONIDE
     Indication: IgA nephropathy
     Route: 048
     Dates: start: 20250228
  2. ONDANSETRON [Concomitant]
     Active Substance: ONDANSETRON
  3. JARDIANCE [Concomitant]
     Active Substance: EMPAGLIFLOZIN
  4. ALLEGRA [Concomitant]
     Active Substance: FEXOFENADINE HYDROCHLORIDE
  5. ATORVASTATIN [Concomitant]
     Active Substance: ATORVASTATIN
  6. LYRICA [Concomitant]
     Active Substance: PREGABALIN
  7. VASCEPA [Concomitant]
     Active Substance: ICOSAPENT ETHYL
  8. MONTELUKAST [Concomitant]
     Active Substance: MONTELUKAST
  9. HYDROXYCHLOROQUINE [Concomitant]
     Active Substance: HYDROXYCHLOROQUINE
  10. METFORMIN HYDROCHLORIDE [Concomitant]
     Active Substance: METFORMIN HYDROCHLORIDE
  11. TELMISARTAN [Concomitant]
     Active Substance: TELMISARTAN
  12. ESOMEPRAZOLE MAGNESIUM [Concomitant]
     Active Substance: ESOMEPRAZOLE MAGNESIUM
  13. KETOROLAC [Concomitant]
     Active Substance: KETOROLAC TROMETHAMINE
  14. VITAMIN C [Concomitant]
     Active Substance: ASCORBIC ACID
  15. ONE A DAY WOMEN^S 50+ COMPLETE MULTIVITAMIN [Concomitant]
  16. CALCIUM + VITAMIN D3 [CALCIUM;COLECALCIFEROL] [Concomitant]
  17. FISH OIL [Concomitant]
     Active Substance: FISH OIL
  18. VITAMIN E [Concomitant]
     Active Substance: .ALPHA.-TOCOPHEROL
  19. ACETAMINOPHEN [Concomitant]
     Active Substance: ACETAMINOPHEN
  20. DIETARY SUPPLEMENT [Concomitant]
     Active Substance: DIETARY SUPPLEMENT
  21. MELATONIN [Concomitant]
     Active Substance: MELATONIN
  22. ALLEGRA ALLERGY [Concomitant]
     Active Substance: FEXOFENADINE HYDROCHLORIDE
  23. FENOFIBRATE [Concomitant]
     Active Substance: FENOFIBRATE
  24. SUMATRIPTAN [Concomitant]
     Active Substance: SUMATRIPTAN
  25. SULFASALAZINE [Concomitant]
     Active Substance: SULFASALAZINE

REACTIONS (11)
  - Intentional underdose [Recovered/Resolved]
  - Abdominal discomfort [Recovering/Resolving]
  - Back pain [Not Recovered/Not Resolved]
  - Musculoskeletal stiffness [Not Recovered/Not Resolved]
  - Melaena [Not Recovered/Not Resolved]
  - Abdominal pain upper [Not Recovered/Not Resolved]
  - Dry skin [Recovering/Resolving]
  - Pruritus [Recovering/Resolving]
  - Insomnia [Recovering/Resolving]
  - Joint swelling [Not Recovered/Not Resolved]
  - Peripheral swelling [Not Recovered/Not Resolved]

NARRATIVE: CASE EVENT DATE: 20250302
